FAERS Safety Report 7672916-4 (Version None)
Quarter: 2011Q3

REPORT INFORMATION
  Report Type: 
  Country: None (occurrence: None)
  Receive Date: 20110809
  Receipt Date: 20110803
  Transmission Date: 20111222
  Serious: Yes (Other)
  Sender: FDA-Public Use
  Company Number: PHEH2010US03391

PATIENT
  Sex: Female

DRUGS (16)
  1. ZELNORM [Suspect]
     Indication: IRRITABLE BOWEL SYNDROME
     Route: 048
     Dates: start: 20030101
  2. LEXAPRO [Concomitant]
  3. PROVENTIL [Concomitant]
  4. TRAZODONE HCL [Concomitant]
  5. LASIX [Concomitant]
     Dosage: 40 MG, QD
  6. ALBUTEROL SULFATE AUTOHALER [Concomitant]
  7. ADVAIR DISKUS 100/50 [Concomitant]
     Dosage: 1 DF, BID, 500/50
  8. THEOPHYLLINE [Concomitant]
     Dosage: 2 DF, QD
     Route: 048
  9. SINGULAIR [Concomitant]
     Dosage: 10 MG, QD
  10. ZELNORM [Suspect]
     Indication: GASTRIC DISORDER
  11. HYDROCHLOROTHIAZIDE [Concomitant]
  12. NIZATIDINE [Concomitant]
  13. KLONOPIN [Concomitant]
  14. SEROQUEL [Concomitant]
  15. ZYRTEC [Concomitant]
     Dosage: 10 MG, QD
  16. ALDORIL 15 [Concomitant]

REACTIONS (12)
  - DYSPNOEA [None]
  - MYOFASCIAL PAIN SYNDROME [None]
  - SINUSITIS [None]
  - MIGRAINE [None]
  - RASH [None]
  - SUPRAVENTRICULAR EXTRASYSTOLES [None]
  - VAGINAL INFECTION [None]
  - ASTHMA [None]
  - CHEST PAIN [None]
  - INJURY [None]
  - CARDIAC DISORDER [None]
  - EAR PAIN [None]
